FAERS Safety Report 24064511 (Version 1)
Quarter: 2024Q3

REPORT INFORMATION
  Report Type: Spontaneous
  Country: NL (occurrence: NL)
  Receive Date: 20240709
  Receipt Date: 20240709
  Transmission Date: 20241016
  Serious: Yes (Hospitalization, Other)
  Sender: MYLAN
  Company Number: NL-Daleco-2024-NL-000057

PATIENT
  Age: 83 Year
  Sex: Female

DRUGS (32)
  1. PRAVASTATIN [Interacting]
     Active Substance: PRAVASTATIN
     Indication: Product used for unknown indication
     Dosage: 1 DOSAGE FORM, QD BEFORE THE NIGHT: 1 TABLET
     Route: 048
  2. BUMETANIDE [Interacting]
     Active Substance: BUMETANIDE
     Indication: Product used for unknown indication
     Dosage: 1 DOSAGE FORM, QD 1 TABLET ONCE PER DAY
     Route: 048
  3. NAPROXEN [Interacting]
     Active Substance: NAPROXEN
     Indication: Product used for unknown indication
     Dosage: 1 DOSAGE FORM, QD, AS NEEDED 1 TABLET PER DAY
     Route: 048
  4. DILTIAZEM [Interacting]
     Active Substance: DILTIAZEM
     Indication: Product used for unknown indication
     Dosage: 1 DOSAGE FORM, BID, 2 TIMES PER DAY 1 TABLET
     Route: 048
     Dates: end: 20240605
  5. SOLIFENACIN [Interacting]
     Active Substance: SOLIFENACIN
     Indication: Product used for unknown indication
     Dosage: 1 TABLET ONCE PER DAY, QD
     Route: 048
  6. ACETAMINOPHEN [Interacting]
     Active Substance: ACETAMINOPHEN
     Indication: Product used for unknown indication
     Dosage: UNK, ACCORDING TO DIRECTIONS IN PATIENT INFORMATION LEAFLET
     Route: 048
  7. ACETAMINOPHEN [Interacting]
     Active Substance: ACETAMINOPHEN
     Dosage: 2 DOSAGE FORM, PRN, 2 TABLETS AS NEEDED
     Route: 048
  8. NITROLINGUAL [Interacting]
     Active Substance: NITROGLYCERIN
     Indication: Chest pain
     Dosage: 1 DOSAGE FORM, PRN, 1 SPRAY UNDER THE TONGUE. REPEAT AFTER 5 MINUTES IF NECESSARY. NOT MORE THAN 3
  9. IMDUR [Interacting]
     Active Substance: ISOSORBIDE MONONITRATE
     Indication: Product used for unknown indication
     Dosage: 1 DOSAGE FORM, QD, MORNING: 1 TABLET. IMDUR TABL MVA 60 MG
     Route: 048
     Dates: start: 20230831
  10. IMDUR [Interacting]
     Active Substance: ISOSORBIDE MONONITRATE
     Dosage: 1 DOSAGE FORM, QD, MORNING: 1 TABLET. ISOSORBID MONO RET T 60 MG
     Route: 048
     Dates: end: 20230831
  11. TRANYLCYPROMINE [Suspect]
     Active Substance: TRANYLCYPROMINE
     Indication: Product used for unknown indication
     Dosage: 1.5 DOSAGE FORM, BID MORNING: ONE AND A HALF TABLETS, EVENING: ONE AND A HALF TABLETS
     Route: 048
     Dates: end: 20240508
  12. TRANYLCYPROMINE SULFATE [Interacting]
     Active Substance: TRANYLCYPROMINE SULFATE
     Indication: Psychotic disorder
     Dosage: 3 DOSAGE FORM, BID, DOSE OF TRACYDAL INCREASED TO 3 TABLETS TWICE A DAY
     Route: 048
     Dates: start: 2022
  13. TRANYLCYPROMINE SULFATE [Interacting]
     Active Substance: TRANYLCYPROMINE SULFATE
     Dosage: 1 DOSAGE FORM, Q8H, TRACYDAL DOSAGE WAS REDUCED AFTER INITIAL START 10 YEARS AGO. REDUCED TO THE
     Route: 048
  14. TRANYLCYPROMINE SULFATE [Interacting]
     Active Substance: TRANYLCYPROMINE SULFATE
     Dosage: HEAVIER DOSES HAVE BEEN ADMINISTERED THERE IN COMBINATION WITH ANTIDEPRESSANTS. THEN REDUCED TO
     Route: 048
     Dates: start: 2016
  15. TRANYLCYPROMINE SULFATE [Interacting]
     Active Substance: TRANYLCYPROMINE SULFATE
     Dosage: 1.5 DOSAGE FORM, BID, AT THE TIME OF REPORTING, 1.5 TABLET IN THE MORNING, 1.5 TABLET IN THE EVENING
     Route: 048
  16. ASPIRIN [Interacting]
     Active Substance: ASPIRIN
     Indication: Product used for unknown indication
     Dosage: 1 DOSAGE FORM, QD, MORNING: 1 TABLET
     Route: 048
  17. DARIFENACIN [Interacting]
     Active Substance: DARIFENACIN
     Indication: Product used for unknown indication
     Dosage: 1 DOSAGE FORM, QD BEFORE THE NIGHT: 1 TABLET
     Route: 048
     Dates: end: 20240607
  18. BECLOMETHASONE DIPROPIONATE\FORMOTEROL FUMARATE\GLYCOPYRROLATE [Interacting]
     Active Substance: BECLOMETHASONE DIPROPIONATE\FORMOTEROL FUMARATE\GLYCOPYRROLATE
     Indication: Product used for unknown indication
     Dosage: UNK 87/5/9MCG/D 120
     Route: 065
     Dates: end: 20230821
  19. BECLOMETHASONE DIPROPIONATE\FORMOTEROL FUMARATE\GLYCOPYRROLATE [Interacting]
     Active Substance: BECLOMETHASONE DIPROPIONATE\FORMOTEROL FUMARATE\GLYCOPYRROLATE
     Dosage: UNK 87/5/9MCG/D 120
     Route: 065
     Dates: start: 20230821, end: 20231213
  20. BECLOMETHASONE DIPROPIONATE\FORMOTEROL FUMARATE\GLYCOPYRROLATE [Interacting]
     Active Substance: BECLOMETHASONE DIPROPIONATE\FORMOTEROL FUMARATE\GLYCOPYRROLATE
     Dosage: 2 DOSAGE FORM, BID,2 TIMES PER DAY 2 INHALATIONS, 87/5/9MCG/D 120
     Route: 065
     Dates: start: 20231213
  21. POLYETHYLENE GLYCOLS [Concomitant]
     Active Substance: POLYETHYLENE GLYCOLS
     Dosage: 1 DOSAGE FORM, BID, AS NEEDED TWICE A DAY 1 SACHET
     Route: 048
  22. PROLIA [Concomitant]
     Active Substance: DENOSUMAB
     Dosage: 1 DOSAGE FORM, 1 INJECTION, ONCE EVERY 6 MONTHS, PARENTERAL
     Route: 065
  23. CALCIUM CARBONATE\CHOLECALCIFEROL [Concomitant]
     Active Substance: CALCIUM CARBONATE\CHOLECALCIFEROL
     Dosage: 1 DOSAGE FORM, QD,MORNING: 1 TABLET
     Route: 048
     Dates: start: 20231109
  24. CALCIUM CARBONATE\CHOLECALCIFEROL [Concomitant]
     Active Substance: CALCIUM CARBONATE\CHOLECALCIFEROL
     Dosage: UNK CALC/VIT D3 COST 0.5 G/800 IE
     Route: 048
     Dates: end: 20231109
  25. ATROVENT [Concomitant]
     Active Substance: IPRATROPIUM BROMIDE
     Dosage: 8 DOSAGE FORM, QD, 4 TIMES PER DAY 2 INHALATIONS, 20 MCG/DO 200 DO
     Route: 065
     Dates: start: 20231003
  26. ATROVENT [Concomitant]
     Active Substance: IPRATROPIUM BROMIDE
     Dosage: 2 DOSAGE FORM, Q8H, IPRATROPIUMBR AER 20MCG/D
     Route: 065
     Dates: start: 20230821, end: 20231003
  27. ATROVENT [Concomitant]
     Active Substance: IPRATROPIUM BROMIDE
     Dosage: 2 DOSAGE FORM, Q6H, IPRATROPIUM INH 20MCG/DO
     Route: 065
     Dates: end: 20230821
  28. FERROFUMARAT [Concomitant]
     Dosage: 2 DOSAGE FORM, QW, TUESDAY 1 AND FRIDAY 1
     Route: 048
  29. FOLIC ACID [Concomitant]
     Active Substance: FOLIC ACID
     Dosage: 1 DOSAGE FORM, QD, MORNING: 1 TABLET
     Route: 048
  30. ESOMEPRAZOLE [Concomitant]
     Active Substance: ESOMEPRAZOLE
     Dosage: 1 DOSAGE FORM, QD MORNING: 1 TABLET
     Route: 048
  31. DICLOFENAC DIETHYLAMINE [Concomitant]
     Active Substance: DICLOFENAC DIETHYLAMINE
     Dosage: USE PER DIRECTION OF PATIENT INFORMATION LEAFLET
     Route: 003
  32. LOCOID [Concomitant]
     Active Substance: HYDROCORTISONE BUTYRATE
     Dosage: 1 DOSAGE FORM BID APPLY TWICE A DAY
     Route: 003

REACTIONS (14)
  - Pneumonia [Unknown]
  - Depression [Unknown]
  - Dizziness [Recovered/Resolved]
  - Paraesthesia [Recovered/Resolved]
  - Malaise [Recovered/Resolved]
  - Muscular weakness [Recovered/Resolved]
  - Hypertension [Unknown]
  - Blood pressure fluctuation [Unknown]
  - Fall [Unknown]
  - Diet noncompliance [Unknown]
  - Potentiating drug interaction [Recovered/Resolved]
  - Prescribed overdose [Recovered/Resolved]
  - Drug effective for unapproved indication [Unknown]
  - Labelled drug-food interaction medication error [Unknown]

NARRATIVE: CASE EVENT DATE: 20240530
